FAERS Safety Report 24274916 (Version 1)
Quarter: 2024Q3

REPORT INFORMATION
  Report Type: Spontaneous
  Country: GB (occurrence: GB)
  Receive Date: 20240902
  Receipt Date: 20240902
  Transmission Date: 20241016
  Serious: Yes (Death)
  Sender: NOVARTIS
  Company Number: GB-002147023-NVSC2024GB175546

PATIENT
  Age: 2 Year
  Sex: Female

DRUGS (1)
  1. EVEROLIMUS [Suspect]
     Active Substance: EVEROLIMUS
     Indication: Brain stem glioma
     Dosage: UNK
     Route: 065

REACTIONS (4)
  - Brain stem glioma [Fatal]
  - Malignant neoplasm progression [Fatal]
  - Product use issue [Unknown]
  - Product use in unapproved indication [Unknown]
